FAERS Safety Report 8936319 (Version 3)
Quarter: 2017Q3

REPORT INFORMATION
  Report Type: Spontaneous
  Country: FR (occurrence: FR)
  Receive Date: 20121130
  Receipt Date: 20170720
  Transmission Date: 20171128
  Serious: Yes (Hospitalization)
  Sender: FDA-Public Use
  Company Number: FR-NAPPMUNDI-GBR-2012-0012169

PATIENT
  Age: 24 Year
  Sex: Female

DRUGS (7)
  1. OXYNORM [Suspect]
     Active Substance: OXYCODONE HYDROCHLORIDE
     Indication: BACK PAIN
     Dosage: UNK
     Route: 065
     Dates: end: 20110228
  2. SPASFON /00765801/ [Concomitant]
     Active Substance: PHLOROGLUCINOL\1,3,5-TRIMETHOXYBENZENE
  3. PRIMPERAN [Concomitant]
     Active Substance: METOCLOPRAMIDE HYDROCHLORIDE
  4. ACUPAN [Concomitant]
     Active Substance: NEFOPAM HYDROCHLORIDE
  5. VALIUM [Concomitant]
     Active Substance: DIAZEPAM
  6. KEPPRA [Concomitant]
     Active Substance: LEVETIRACETAM
  7. PERFALGAN [Concomitant]
     Active Substance: ACETAMINOPHEN

REACTIONS (10)
  - Pain [Unknown]
  - Drug withdrawal syndrome [Unknown]
  - Chills [Unknown]
  - Drug dependence [Unknown]
  - Sleep disorder [Unknown]
  - Anxiety [Unknown]
  - Dehydration [Unknown]
  - Vomiting [Unknown]
  - Hyperhidrosis [Unknown]
  - Pallor [Unknown]

NARRATIVE: CASE EVENT DATE: 20110302
